FAERS Safety Report 20562721 (Version 1)
Quarter: 2022Q1

REPORT INFORMATION
  Report Type: Spontaneous
  Country: DE (occurrence: DE)
  Receive Date: 20220307
  Receipt Date: 20220307
  Transmission Date: 20220423
  Serious: Yes (Other)
  Sender: FDA-Public Use
  Company Number: DE-BoehringerIngelheim-2021-BI-085660

PATIENT
  Age: 67 Year
  Sex: Male

DRUGS (1)
  1. AFATINIB [Suspect]
     Active Substance: AFATINIB
     Indication: Squamous cell carcinoma
     Dates: start: 20200925

REACTIONS (7)
  - Pneumonia [Unknown]
  - Neoplasm progression [Unknown]
  - Metastases to lung [Unknown]
  - Chest pain [Unknown]
  - Rash [Unknown]
  - Haemoglobin abnormal [Recovered/Resolved]
  - Rash [Unknown]

NARRATIVE: CASE EVENT DATE: 20210727
